FAERS Safety Report 5728764-5 (Version None)
Quarter: 2008Q2

REPORT INFORMATION
  Report Type: 
  Country: None (occurrence: None)
  Receive Date: 20080506
  Receipt Date: 20080428
  Transmission Date: 20081010
  Serious: Yes (Death, Hospitalization)
  Sender: FDA-Public Use
  Company Number: B0518537A

PATIENT
  Age: 77 Year
  Sex: Male

DRUGS (4)
  1. AUGMENTIN '125' [Suspect]
     Indication: DRUG USE FOR UNKNOWN INDICATION
     Dosage: 1SAC TWICE PER DAY
     Route: 048
     Dates: start: 20071207, end: 20071215
  2. DEXTROPROPOXYPHENE/ PARACETAMOL [Suspect]
     Indication: DRUG USE FOR UNKNOWN INDICATION
     Route: 048
     Dates: end: 20071230
  3. PIASCLEDINE [Suspect]
     Indication: DRUG USE FOR UNKNOWN INDICATION
     Dosage: 300MG PER DAY
     Route: 048
     Dates: end: 20071230
  4. LORAZEPAM [Concomitant]
     Indication: DRUG USE FOR UNKNOWN INDICATION
     Dosage: 1MG PER DAY
     Route: 048
     Dates: end: 20071230

REACTIONS (9)
  - ANAEMIA [None]
  - BICYTOPENIA [None]
  - CHILLS [None]
  - DYSPHAGIA [None]
  - DYSPNOEA [None]
  - FEBRILE NEUTROPENIA [None]
  - LUNG DISORDER [None]
  - PULMONARY HYPERTENSION [None]
  - VOMITING [None]
